FAERS Safety Report 7497292-1 (Version None)
Quarter: 2011Q2

REPORT INFORMATION
  Report Type: 
  Country: None (occurrence: None)
  Receive Date: 20110523
  Receipt Date: 20110512
  Transmission Date: 20111010
  Serious: Yes (Hospitalization, Other)
  Sender: FDA-Public Use
  Company Number: PHEH2007US11288

PATIENT
  Sex: Female
  Weight: 52.2 kg

DRUGS (47)
  1. MELPHALAN HYDROCHLORIDE [Concomitant]
     Dosage: 295 MG, ONCE/SINGLE
  2. PENICILLIN ^GRUNENTHAL^ [Concomitant]
  3. DEXAMETHASONE [Concomitant]
     Dosage: 4MG / 5 TABLETS DAILY , FOR 5 DAYS
  4. ACYCLOVIR [Concomitant]
     Dosage: 800 MG, Q12H
     Route: 048
  5. IBUPROFEN [Concomitant]
     Dosage: 200 MG, UNK
     Route: 048
  6. COMPAZINE [Concomitant]
     Dosage: 10 MG, Q 4 HOURS PRN
     Route: 048
  7. FILGRASTIM [Concomitant]
     Dosage: 0.3 MG, UNK
     Route: 042
  8. CYTOXAN [Concomitant]
  9. ARANESP [Concomitant]
  10. RELAFEN [Concomitant]
  11. OXYCONTIN [Concomitant]
  12. AREDIA [Suspect]
     Dosage: 90 MG, UNK
     Dates: start: 20010920
  13. NEURONTIN [Concomitant]
     Indication: MUSCULOSKELETAL PAIN
     Dosage: 200 MG, UNK
  14. CEFEPIME [Concomitant]
     Dosage: 1 G, Q8H
     Route: 042
  15. VINCRISTINE [Concomitant]
  16. DIFLUCORTOLONE VALERATE [Concomitant]
  17. THALIDOMIDE [Concomitant]
  18. ZOMETA [Suspect]
     Indication: MULTIPLE MYELOMA
     Dosage: 4 MG, UNK
     Dates: start: 20010901, end: 20050701
  19. ZOLOFT [Concomitant]
     Dosage: 50 MG / 1 TABLET EVERY NIGHT AT BEDTIME
  20. CHLORHEXIDINE [Concomitant]
     Dosage: UNK / RINSE 1/2 OZ 2 X DAY
  21. FLUCONAZOLE [Concomitant]
     Dosage: 400 MG, QD
     Route: 048
  22. HYDROCORTISONE [Concomitant]
     Dosage: 250 MG, ONCE/SINGLE
     Route: 042
  23. ZOFRAN [Concomitant]
     Dosage: 8 MG, TID
     Route: 042
  24. CIPRO [Concomitant]
     Dosage: 500 MG, TID
  25. CHANTIX [Concomitant]
  26. PROCRIT                            /00909301/ [Concomitant]
     Indication: ANAEMIA
  27. NEUPOGEN [Concomitant]
     Dosage: 300 MG, UNK
  28. PEN-VEE K [Concomitant]
     Dosage: 500 MG, BID
     Route: 042
     Dates: start: 20070917
  29. CELEBREX [Concomitant]
  30. AMBIEN [Concomitant]
  31. NASONEX [Concomitant]
     Dosage: 50 MCG / INHALE 2 SPRAYS EACH NOSTRIL DAILY
     Route: 045
  32. MAGIC MOUTHWASH [Concomitant]
     Dosage: UNK
  33. AUGMENTIN '125' [Concomitant]
     Dosage: 875 MG, BID
     Route: 048
  34. GABAPENTIN [Concomitant]
     Dosage: 200 MG, BID
     Route: 048
  35. DIPHENHYDRAMINE HCL [Concomitant]
     Dosage: 50 MG, ONCE/SINGLE
  36. UNASYN [Concomitant]
     Dosage: 3 G, Q6H
     Route: 042
  37. IRON DEXTRAN [Concomitant]
     Dosage: 800 MG, UNK
     Route: 042
  38. UNASYN [Concomitant]
     Dosage: 1.5 G, UNK
     Route: 042
  39. POTASSIUM CHLORIDE [Concomitant]
     Dosage: 80 MEQ, QD
  40. DOXIL [Concomitant]
     Dosage: UNK
     Dates: start: 20031001
  41. TORADOL [Concomitant]
  42. AMOXICILLIN [Concomitant]
  43. SKELAXIN [Concomitant]
  44. CLINDAMYCIN [Concomitant]
  45. ONDANSETRON [Concomitant]
     Dosage: 24 MG, DAILY FOR 3 DAYS
     Route: 048
  46. ZOSYN [Concomitant]
  47. COUMADIN [Concomitant]

REACTIONS (77)
  - DEHYDRATION [None]
  - LIFE EXPECTANCY SHORTENED [None]
  - ANAEMIA [None]
  - ABSCESS ORAL [None]
  - ABDOMINAL PAIN [None]
  - CARPAL TUNNEL SYNDROME [None]
  - HAEMATOCRIT DECREASED [None]
  - RED BLOOD CELL SEDIMENTATION RATE INCREASED [None]
  - DEFORMITY [None]
  - INJURY [None]
  - DISCOMFORT [None]
  - OSTEOLYSIS [None]
  - C-REACTIVE PROTEIN INCREASED [None]
  - LUMBAR RADICULOPATHY [None]
  - NERVE ROOT LESION [None]
  - EMPHYSEMA [None]
  - NAUSEA [None]
  - OSTEONECROSIS OF JAW [None]
  - EMOTIONAL DISTRESS [None]
  - GASTRITIS [None]
  - RECTAL HAEMORRHAGE [None]
  - MUSCULOSKELETAL CHEST PAIN [None]
  - HYPOAESTHESIA [None]
  - MEAN CELL HAEMOGLOBIN CONCENTRATION [None]
  - VERTEBRAL FORAMINAL STENOSIS [None]
  - ARTHROPATHY [None]
  - BONE PAIN [None]
  - HYPOPHAGIA [None]
  - HYPOKALAEMIA [None]
  - METASTASES TO BONE [None]
  - RED BLOOD CELL COUNT DECREASED [None]
  - PAIN [None]
  - ANXIETY [None]
  - DECREASED INTEREST [None]
  - GINGIVAL DISORDER [None]
  - PNEUMONIA [None]
  - GASTROINTESTINAL HAEMORRHAGE [None]
  - GASTROINTESTINAL ARTERIOVENOUS MALFORMATION [None]
  - INTERVERTEBRAL DISC DISORDER [None]
  - INTERVERTEBRAL DISC PROTRUSION [None]
  - COLON ADENOMA [None]
  - COUGH [None]
  - VOMITING [None]
  - CARDIAC FAILURE CONGESTIVE [None]
  - CANDIDIASIS [None]
  - OSTEOMYELITIS [None]
  - FALL [None]
  - COLONOSCOPY [None]
  - LOCAL SWELLING [None]
  - NEUTROPENIA [None]
  - COMPRESSION FRACTURE [None]
  - MELAENA [None]
  - PYREXIA [None]
  - DYSPNOEA [None]
  - WHITE BLOOD CELL COUNT DECREASED [None]
  - CARDIOMYOPATHY [None]
  - ORAL DISORDER [None]
  - IMPAIRED HEALING [None]
  - ENDOSCOPY [None]
  - RENAL FAILURE ACUTE [None]
  - ATELECTASIS [None]
  - SPINAL OSTEOARTHRITIS [None]
  - RETICULOCYTE COUNT INCREASED [None]
  - HIATUS HERNIA [None]
  - LYMPHADENOPATHY [None]
  - CENTRAL NERVOUS SYSTEM LESION [None]
  - ABSCESS NECK [None]
  - GINGIVAL EROSION [None]
  - MUCOSAL INFLAMMATION [None]
  - DEPRESSION [None]
  - UNRESPONSIVE TO STIMULI [None]
  - NEUROPATHY PERIPHERAL [None]
  - LUMBAR SPINAL STENOSIS [None]
  - BACK PAIN [None]
  - PLEURAL EFFUSION [None]
  - CORONARY ARTERY DISEASE [None]
  - HYPOTENSION [None]
